FAERS Safety Report 4968133-9 (Version None)
Quarter: 2006Q2

REPORT INFORMATION
  Report Type: 
  Country: None (occurrence: None)
  Receive Date: 20060410
  Receipt Date: 20060126
  Transmission Date: 20061013
  Serious: Yes (Life-Threatening, Hospitalization, Other)
  Sender: FDA-Public Use
  Company Number: PHBS2006JP01438

PATIENT
  Age: 66 Year
  Sex: Male
  Weight: 72 kg

DRUGS (11)
  1. DIOVAN [Suspect]
     Indication: HYPERTENSION
     Dosage: 80 MG/DAY
     Route: 048
     Dates: end: 20060123
  2. DIOVAN [Suspect]
     Dosage: UNK, ONCE/SINGLE
     Dates: start: 20060123, end: 20060123
  3. NORVASC [Suspect]
     Indication: HYPERTENSION
     Dosage: 10 MG/DAY
     Route: 048
     Dates: end: 20060123
  4. NORVASC [Suspect]
     Dosage: UNK, ONCE/SINGLE
     Dates: start: 20060123, end: 20060123
  5. KERLONG [Suspect]
     Indication: HYPERTENSION
     Dosage: 0.6 MG/DAY
     Route: 048
     Dates: start: 20060117, end: 20060123
  6. KERLONG [Suspect]
     Dosage: UNK, ONCE/SINGLE
     Dates: start: 20060123, end: 20060123
  7. ACTOS [Concomitant]
     Indication: DIABETES MELLITUS
     Dosage: 30 MG, UNK
     Route: 048
     Dates: end: 20060123
  8. AMARYL [Concomitant]
     Indication: DIABETES MELLITUS
     Dosage: 1 MG, UNK
     Route: 048
     Dates: end: 20060123
  9. BASEN [Concomitant]
     Indication: DIABETES MELLITUS
     Dosage: 0.6 MG, UNK
     Route: 048
     Dates: end: 20060123
  10. MUCOSTA [Concomitant]
     Indication: GASTRITIS
     Dosage: 300 MG, UNK
     Route: 048
     Dates: end: 20060123
  11. GASTER D [Concomitant]
     Indication: GASTRITIS
     Dosage: 20 MG, UNK
     Route: 048
     Dates: end: 20060123

REACTIONS (27)
  - AGGRESSION [None]
  - APNOEIC ATTACK [None]
  - BLOOD BILIRUBIN INCREASED [None]
  - BLOOD CREATINE PHOSPHOKINASE INCREASED [None]
  - BLOOD CREATININE INCREASED [None]
  - BLOOD POTASSIUM INCREASED [None]
  - BLOOD UREA INCREASED [None]
  - C-REACTIVE PROTEIN INCREASED [None]
  - CARDIAC ARREST [None]
  - DEPRESSED LEVEL OF CONSCIOUSNESS [None]
  - DIZZINESS [None]
  - DRUG INEFFECTIVE [None]
  - DRUG LEVEL INCREASED [None]
  - DRUG TOXICITY [None]
  - DYSURIA [None]
  - HYPOTENSION [None]
  - LIVER DISORDER [None]
  - NODAL RHYTHM [None]
  - OVERDOSE [None]
  - PNEUMONIA ASPIRATION [None]
  - PULMONARY CONGESTION [None]
  - PYREXIA [None]
  - RALES [None]
  - RENAL FAILURE ACUTE [None]
  - SHOCK [None]
  - SUICIDE ATTEMPT [None]
  - VOMITING [None]
